FAERS Safety Report 7030626-0 (Version None)
Quarter: 2010Q4

REPORT INFORMATION
  Report Type: 
  Country: None (occurrence: None)
  Receive Date: 20101001
  Receipt Date: 20100921
  Transmission Date: 20110411
  Serious: Yes (Death, Congenital Anomaly)
  Sender: FDA-Public Use
  Company Number: B0676520A

PATIENT

DRUGS (6)
  1. ZIDOVUDINE [Suspect]
     Indication: PROPHYLAXIS AGAINST HIV INFECTION
     Dosage: 300 MG / TWICE PER DAY / TRANSPLACEN
     Route: 064
  2. NEVIRAPINE [Suspect]
     Indication: PROPHYLAXIS AGAINST HIV INFECTION
     Dosage: 200 MG / SINGLE DOSE / TRAMPLACENTA
     Route: 064
  3. TENOFOVIR (FORMULATION UNKNWON) (TENOFOVIR) [Suspect]
     Indication: PROPHYLAXIS AGAINST HIV INFECTION
     Dosage: UNK / UNK / TRANSPLACENTARY
     Route: 064
  4. EMTRICITABINE [Suspect]
     Indication: PROPHYLAXIS AGAINST HIV INFECTION
     Dosage: UNK / UNK / TRANSPLACENTARY
     Route: 064
  5. TENOFOVIR [Concomitant]
  6. EMTRICITABINE [Concomitant]

REACTIONS (3)
  - BRAIN INJURY [None]
  - CONGENITAL CENTRAL NERVOUS SYSTEM ANOMALY [None]
  - MATERNAL DEATH AFFECTING FOETUS [None]
